FAERS Safety Report 6036520-6 (Version None)
Quarter: 2009Q1

REPORT INFORMATION
  Report Type: 
  Country: None (occurrence: None)
  Receive Date: 20090114
  Receipt Date: 20090112
  Transmission Date: 20090719
  Serious: Yes (Hospitalization)
  Sender: FDA-Public Use
  Company Number: AU-ASTRAZENECA-2008AP09215

PATIENT
  Age: 15874 Day
  Sex: Male
  Weight: 90 kg

DRUGS (8)
  1. SEROQUEL [Suspect]
     Indication: AFFECTIVE DISORDER
     Dosage: SEROQUEL IR 100MG TWICE DURING DAY, PLUS 200MG AT NIGHT
     Route: 048
     Dates: start: 20080830
  2. SEROQUEL [Suspect]
     Indication: CONVERSION DISORDER
     Dosage: SEROQUEL IR 100MG TWICE DURING DAY, PLUS 200MG AT NIGHT
     Route: 048
     Dates: start: 20080830
  3. SEROQUEL [Suspect]
     Dosage: SEROQUEL XR
     Route: 048
     Dates: start: 20081123
  4. SEROQUEL [Suspect]
     Dosage: SEROQUEL XR
     Route: 048
     Dates: start: 20081123
  5. EPILIM [Concomitant]
     Dosage: 700MG - 1G
  6. TEGRETOL [Concomitant]
  7. ZOPICLONE [Concomitant]
  8. CLONAZEPAM [Concomitant]

REACTIONS (3)
  - DRUG INEFFECTIVE [None]
  - INTENTIONAL SELF-INJURY [None]
  - SCHIZOPHRENIA [None]
